FAERS Safety Report 24760887 (Version 1)
Quarter: 2024Q4

REPORT INFORMATION
  Report Type: Spontaneous
  Country: JP (occurrence: JP)
  Receive Date: 20241220
  Receipt Date: 20241220
  Transmission Date: 20250115
  Serious: Yes (Hospitalization, Other)
  Sender: JAZZ
  Company Number: JP-JAZZ PHARMACEUTICALS-2024-JP-024477

PATIENT
  Age: 30 Year
  Sex: Female

DRUGS (1)
  1. VYXEOS [Suspect]
     Active Substance: CYTARABINE\DAUNORUBICIN
     Indication: Acute myeloid leukaemia
     Dosage: 100 UNITS/SQUARE METER DAILY
     Route: 042
     Dates: start: 20241203

REACTIONS (5)
  - Clostridium difficile colitis [Not Recovered/Not Resolved]
  - Ileus [Not Recovered/Not Resolved]
  - Pneumonia [Not Recovered/Not Resolved]
  - Human herpesvirus 6 encephalitis [Not Recovered/Not Resolved]
  - Fasciitis [Recovered/Resolved]
